FAERS Safety Report 8969514 (Version 3)
Quarter: 2013Q1

REPORT INFORMATION
  Report Type: Spontaneous
  Country: US (occurrence: None)
  Receive Date: 20121210
  Receipt Date: 20121220
  Transmission Date: 20140127
  Serious: Yes (Other)
  Sender: FDA-Public Use
  Company Number: US-1195545

PATIENT
  Age: 27 Year
  Sex: Female

DRUGS (1)
  1. SYSTANE EYEDROPS [Suspect]
     Indication: POSTOPERATIVE CARE
     Route: 047
     Dates: start: 20121018, end: 20121024

REACTIONS (9)
  - Asthma [None]
  - Rash pruritic [None]
  - Lip swelling [None]
  - Swollen tongue [None]
  - Pharyngeal oedema [None]
  - Urticaria [None]
  - Chest discomfort [None]
  - Dyspnoea [None]
  - Rash pruritic [None]
